FAERS Safety Report 7162076-0 (Version None)
Quarter: 2010Q4

REPORT INFORMATION
  Report Type: 
  Country: None (occurrence: None)
  Receive Date: 20101215
  Receipt Date: 20101209
  Transmission Date: 20110411
  Serious: Yes (Hospitalization, Disabling)
  Sender: FDA-Public Use
  Company Number: FR-ROCHE-730157

PATIENT
  Sex: Female
  Weight: 49 kg

DRUGS (17)
  1. CAPECITABINE [Suspect]
     Dosage: FREQUENCY: 14 DAYS EVERY 3 WEEKS
     Route: 048
     Dates: start: 20100120, end: 20100517
  2. CAPECITABINE [Suspect]
     Dosage: END DATE: 29 AUG 2010
     Route: 048
     Dates: start: 20100809, end: 20100829
  3. CAPECITABINE [Suspect]
     Route: 048
  4. BEVACIZUMAB [Suspect]
     Dosage: FORM: INFUSION
     Route: 042
     Dates: start: 20090608, end: 20090921
  5. BEVACIZUMAB [Suspect]
     Dosage: DOSAGE FORM: 400MG; DOSAGE ALSO REPORTED AS 7.5 MG/KG
     Route: 042
     Dates: start: 20100120, end: 20100719
  6. BEVACIZUMAB [Suspect]
     Route: 042
     Dates: start: 20100809, end: 20100810
  7. OXALIPLATIN [Suspect]
     Dosage: DOSAGE FORM: 200 MG., FORM: INFUSION
     Route: 042
     Dates: start: 20100120, end: 20100517
  8. OXALIPLATIN [Suspect]
     Route: 042
     Dates: start: 20100809, end: 20100809
  9. OXALIPLATIN [Suspect]
     Route: 042
  10. DEROXAT [Concomitant]
     Dates: start: 20100101
  11. XANAX [Concomitant]
     Dosage: DRUG: XANAX 0.25, FREQUENCY: PRN
     Dates: start: 20100101
  12. IRINOTECAN HCL [Concomitant]
     Route: 042
     Dates: start: 20090608, end: 20090921
  13. FLUOROURACIL [Concomitant]
     Route: 042
     Dates: start: 20090608, end: 20090921
  14. FOLINIC ACID [Concomitant]
     Route: 042
     Dates: start: 20090608, end: 20090921
  15. IMODIUM [Concomitant]
  16. DAFALGAN [Concomitant]
     Dates: start: 20091125
  17. OXYCONTIN [Concomitant]
     Dates: start: 20100120

REACTIONS (2)
  - CEREBRAL ISCHAEMIA [None]
  - CEREBROVASCULAR ACCIDENT [None]
